FAERS Safety Report 16389300 (Version 1)
Quarter: 2019Q2

REPORT INFORMATION
  Report Type: Spontaneous
  Country: JP (occurrence: JP)
  Receive Date: 20190604
  Receipt Date: 20190604
  Transmission Date: 20190711
  Serious: Yes (Death, Other)
  Sender: FDA-Public Use
  Company Number: JP-PFIZER INC-2019228850

PATIENT
  Age: 83 Year
  Sex: Female

DRUGS (1)
  1. LYRICA [Suspect]
     Active Substance: PREGABALIN
     Indication: CANCER PAIN
     Dosage: 75 MG, 1X/DAY
     Route: 048

REACTIONS (5)
  - Disease progression [Fatal]
  - Off label use [Unknown]
  - Product use in unapproved indication [Unknown]
  - Neoplasm malignant [Fatal]
  - Tremor [Recovering/Resolving]
